FAERS Safety Report 14271751 (Version 2)
Quarter: 2018Q2

REPORT INFORMATION
  Report Type: Spontaneous
  Country: US (occurrence: US)
  Receive Date: 20171211
  Receipt Date: 20180503
  Transmission Date: 20180711
  Serious: Yes (Hospitalization, Other)
  Sender: FDA-Public Use
  Company Number: US-OTSUKA-2016_015855

PATIENT
  Age: 37 Year
  Sex: Male
  Weight: 108.8 kg

DRUGS (272)
  1. ARIPIPRAZOLE. [Suspect]
     Active Substance: ARIPIPRAZOLE
     Dosage: 10 MG, QD(TAKE 4 TABLETS BY MOUTH EVERY MORNING FOR 14 DAYS, THEN TAKE 3 + 1/2 TABLETS EVERY MOR)
     Route: 048
     Dates: start: 20141111
  2. ARIPIPRAZOLE. [Suspect]
     Active Substance: ARIPIPRAZOLE
     Dosage: 30 MG, UNK(TAKE 4 TABLETS BY MOUTH EVERY MORNING FOR 14 DAYS, THEN TAKE 3 + 1/2 TABLETS EVERY MOR)
     Route: 065
     Dates: end: 20151213
  3. ARIPIPRAZOLE. [Suspect]
     Active Substance: ARIPIPRAZOLE
     Dosage: 30 MG, UNK(TAKE 4 TABLETS BY MOUTH EVERY MORNING FOR 14 DAYS, THEN TAKE 3 + 1/2 TABLETS EVERY MOR)
     Route: 065
     Dates: end: 20151008
  4. ARIPIPRAZOLE. [Suspect]
     Active Substance: ARIPIPRAZOLE
     Dosage: 30 MG, UNK(TAKE 4 TABLETS BY MOUTH EVERY MORNING FOR 14 DAYS, THEN TAKE 3 + 1/2 TABLETS EVERY MOR)
     Route: 065
     Dates: end: 20150606
  5. ARIPIPRAZOLE. [Suspect]
     Active Substance: ARIPIPRAZOLE
     Dosage: 1 DF,UNK(TAKE 4 TABLETS BY MOUTH EVERY MORNING FOR 14 DAYS, THEN TAKE 3 + 1/2 TABLETS EVERY MOR)
     Route: 048
     Dates: start: 20160126, end: 20170126
  6. ARIPIPRAZOLE. [Suspect]
     Active Substance: ARIPIPRAZOLE
     Dosage: 1 DF, QD (TAKE 4 TABLETS BY MOUTH EVERY MORNING FOR 14 DAYS, THEN TAKE 3 + 1/2 TABLETS EVERY MOR)
     Route: 048
     Dates: start: 20130129, end: 20140130
  7. ARIPIPRAZOLE. [Suspect]
     Active Substance: ARIPIPRAZOLE
     Dosage: 1 DF, QD (TAKE 4 TABLETS BY MOUTH EVERY MORNING FOR 14 DAYS, THEN TAKE 3 + 1/2 TABLETS EVERY MOR)
     Route: 048
     Dates: start: 20120914, end: 20130915
  8. ALIZAPRIDE [Concomitant]
     Active Substance: ALIZAPRIDE
     Indication: PRODUCT USED FOR UNKNOWN INDICATION
     Dosage: UNK
     Route: 065
  9. DOSTINEX [Concomitant]
     Active Substance: CABERGOLINE
     Indication: PRODUCT USED FOR UNKNOWN INDICATION
     Dosage: UNK
     Route: 065
  10. MOTILIUM [Concomitant]
     Active Substance: DOMPERIDONE
     Indication: PRODUCT USED FOR UNKNOWN INDICATION
     Dosage: UNK
     Route: 065
  11. REGLAN [Concomitant]
     Active Substance: METOCLOPRAMIDE HYDROCHLORIDE
     Indication: PRODUCT USED FOR UNKNOWN INDICATION
     Dosage: UNK
     Route: 065
  12. SYMBYAX [Concomitant]
     Active Substance: FLUOXETINE HYDROCHLORIDE\OLANZAPINE
     Indication: PRODUCT USED FOR UNKNOWN INDICATION
     Dosage: UNK
     Route: 065
  13. ZYPREXA [Concomitant]
     Active Substance: OLANZAPINE
     Indication: PRODUCT USED FOR UNKNOWN INDICATION
     Dosage: UNK
     Route: 065
  14. FLUOXETINE HCL [Concomitant]
     Active Substance: FLUOXETINE HYDROCHLORIDE
     Indication: PRODUCT USED FOR UNKNOWN INDICATION
     Dosage: 1 DF, BID (1DF=TWO CAPSULES, 1 DF= 3 CAP, 1 DF: DAYS SUPPLY: 30, QUANTITY: 90, 1 DF: 1 CAP)
     Route: 048
     Dates: start: 20160801
  15. FLUOXETINE HCL [Concomitant]
     Active Substance: FLUOXETINE HYDROCHLORIDE
     Indication: PRODUCT USED FOR UNKNOWN INDICATION
     Dosage: 20 MG, QD (1DF=TWO CAPSULES, 1 DF= 3 CAP, 1 DF: DAYS SUPPLY: 30, QUANTITY: 90, 1 DF: 1 CAP)
     Route: 048
     Dates: start: 20160107, end: 20170126
  16. FLUOXETINE HCL [Concomitant]
     Active Substance: FLUOXETINE HYDROCHLORIDE
     Indication: PRODUCT USED FOR UNKNOWN INDICATION
     Dosage: 20 MG, QD (1DF=TWO CAPSULES, 1 DF= 3 CAP, 1 DF: DAYS SUPPLY: 30, QUANTITY: 90, 1 DF: 1 CAP)
     Route: 048
     Dates: start: 20160107, end: 20160107
  17. BUPROPION HCL [Concomitant]
     Active Substance: BUPROPION HYDROCHLORIDE
     Indication: PRODUCT USED FOR UNKNOWN INDICATION
     Dosage: 1 TAB, BID(BUPROPION HCL 100MG 12HR SA TAB, TAKE DNP TART.PT BY MOUTH EVERY MORN FOR MOOD OR SMOKING
     Route: 048
     Dates: start: 20150925, end: 20160925
  18. BUPROPION HCL [Concomitant]
     Active Substance: BUPROPION HYDROCHLORIDE
     Indication: PRODUCT USED FOR UNKNOWN INDICATION
     Dosage: 1 TAB, QD(BUPROPION HCL 100MG 12HR SA TAB, TAKE DNP TART.PT BY MOUTH EVERY MORN FOR MOOD OR SMOKING,
     Route: 048
     Dates: start: 20120808, end: 20130809
  19. BUPROPION HCL [Concomitant]
     Active Substance: BUPROPION HYDROCHLORIDE
     Indication: PRODUCT USED FOR UNKNOWN INDICATION
     Dosage: 1 TAB, QD(BUPROPION HCL 100MG 12HR SA TAB, TAKE DNP TART.PT BY MOUTH EVERY MORN FOR MOOD OR SMOKING,
     Route: 048
     Dates: start: 20120529, end: 20130530
  20. LISINOPRIL. [Concomitant]
     Active Substance: LISINOPRIL
     Indication: PRODUCT USED FOR UNKNOWN INDICATION
     Dosage: 1 DF, QD (1DF=ONE-HALF TABLET)
     Route: 048
     Dates: start: 20160615
  21. OMEPRAZOLE. [Concomitant]
     Active Substance: OMEPRAZOLE
     Indication: PRODUCT USED FOR UNKNOWN INDICATION
     Dosage: 1 DF, QD(1DF=TWO CAPSULES BY MOUTH DAILY 1 HR PRIOR TO FIRST MEAL OF THE DAY FOR STOMACH,1DF=1 CAP
     Route: 048
     Dates: start: 20160126, end: 20170126
  22. HYDROXYZINE PAMOATE. [Concomitant]
     Active Substance: HYDROXYZINE PAMOATE
     Indication: PRODUCT USED FOR UNKNOWN INDICATION
     Dosage: 25 MG, UNK (1 DF=01 CAP)
     Route: 065
     Dates: end: 20151213
  23. HYDROXYZINE PAMOATE. [Concomitant]
     Active Substance: HYDROXYZINE PAMOATE
     Indication: PRODUCT USED FOR UNKNOWN INDICATION
     Dosage: 1 DF, PRN(1 DF=01 CAP)
     Route: 048
     Dates: start: 20141007, end: 20151008
  24. BUSPIRONE HCL [Concomitant]
     Active Substance: BUSPIRONE HYDROCHLORIDE
     Indication: ANXIETY
     Dosage: DAYS SUPPLY: 30, QUANTITY: 30, DAYS SUPPLY: 30, QUANTITY: 90
     Route: 065
     Dates: end: 20160925
  25. BUSPIRONE HCL [Concomitant]
     Active Substance: BUSPIRONE HYDROCHLORIDE
     Indication: PRODUCT USED FOR UNKNOWN INDICATION
     Dosage: 10 MG, UNK(DAYS SUPPLY: 30, QUANTITY: 30, DAYS SUPPLY: 30, QUANTITY: 90)
     Route: 065
     Dates: end: 20151213
  26. BUSPIRONE HCL [Concomitant]
     Active Substance: BUSPIRONE HYDROCHLORIDE
     Indication: PRODUCT USED FOR UNKNOWN INDICATION
     Dosage: 1 TAB, TID (DAYS SUPPLY: 30, QUANTITY: 30, DAYS SUPPLY: 30, QUANTITY: 90)
     Route: 048
     Dates: start: 20160223
  27. BUSPIRONE HCL [Concomitant]
     Active Substance: BUSPIRONE HYDROCHLORIDE
     Indication: PRODUCT USED FOR UNKNOWN INDICATION
     Dosage: 10 MG, TID(DAYS SUPPLY: 30, QUANTITY: 30, DAYS SUPPLY: 30, QUANTITY: 90)
     Route: 048
     Dates: start: 20160106, end: 20160126
  28. BUSPIRONE HCL [Concomitant]
     Active Substance: BUSPIRONE HYDROCHLORIDE
     Indication: PRODUCT USED FOR UNKNOWN INDICATION
     Dosage: 1 TAB, TID (DAYS SUPPLY: 30, QUANTITY: 30, DAYS SUPPLY: 30, QUANTITY: 90)
     Route: 048
     Dates: start: 20141212, end: 20151213
  29. BUSPIRONE HCL [Concomitant]
     Active Substance: BUSPIRONE HYDROCHLORIDE
     Indication: PRODUCT USED FOR UNKNOWN INDICATION
     Dosage: 1 TAB, TID (DAYS SUPPLY: 30, QUANTITY: 30, DAYS SUPPLY: 30, QUANTITY: 90)
     Route: 048
     Dates: start: 20140605, end: 20150606
  30. BUSPIRONE HCL [Concomitant]
     Active Substance: BUSPIRONE HYDROCHLORIDE
     Indication: PRODUCT USED FOR UNKNOWN INDICATION
     Dosage: 1 TAB, TID (DAYS SUPPLY: 30, QUANTITY: 30, DAYS SUPPLY: 30, QUANTITY: 90)
     Route: 048
     Dates: start: 20100227, end: 20110228
  31. ONDANSETRON [Concomitant]
     Active Substance: ONDANSETRON
     Indication: NAUSEA
     Dosage: UNK
     Route: 065
     Dates: end: 20160324
  32. ONDANSETRON [Concomitant]
     Active Substance: ONDANSETRON
     Indication: PRODUCT USED FOR UNKNOWN INDICATION
     Dosage: 1 TAB, PRN
     Route: 048
     Dates: start: 20160126, end: 20170126
  33. CIPROFLOXACIN HCL [Concomitant]
     Active Substance: CIPROFLOXACIN HYDROCHLORIDE
     Indication: INFECTION
     Dosage: UNK
     Route: 065
     Dates: end: 20141212
  34. CIPROFLOXACIN HCL [Concomitant]
     Active Substance: CIPROFLOXACIN HYDROCHLORIDE
     Indication: PRODUCT USED FOR UNKNOWN INDICATION
     Dosage: 1 DF, BID
     Route: 048
     Dates: start: 20141112, end: 20141212
  35. METHYLPREDNISOLONE. [Concomitant]
     Active Substance: METHYLPREDNISOLONE
     Indication: PRODUCT USED FOR UNKNOWN INDICATION
     Dosage: 1 DF, PRN (DOSEPAK,21 1DF=TABLETS)
     Route: 048
     Dates: start: 20130911, end: 20131011
  36. LITHIUM CARBONATE. [Concomitant]
     Active Substance: LITHIUM CARBONATE
     Indication: PRODUCT USED FOR UNKNOWN INDICATION
     Dosage: 1 TAB, QD (1 DF: DAYS SUPPLY: 30, QUANTITY: 30, DAYS SUPPLY: 30, QUANTITY: 60
     Route: 048
     Dates: start: 20080527, end: 20090528
  37. LITHIUM CARBONATE. [Concomitant]
     Active Substance: LITHIUM CARBONATE
     Indication: PRODUCT USED FOR UNKNOWN INDICATION
     Dosage: 1 TAB, QD (1 DF: DAYS SUPPLY: 30, QUANTITY: 30, DAYS SUPPLY: 30, QUANTITY: 60
     Route: 048
     Dates: start: 20080130, end: 20090130
  38. LITHIUM CARBONATE. [Concomitant]
     Active Substance: LITHIUM CARBONATE
     Indication: PRODUCT USED FOR UNKNOWN INDICATION
     Dosage: 1 TAB, QD (1 DF: DAYS SUPPLY: 30, QUANTITY: 30, DAYS SUPPLY: 30, QUANTITY: 60
     Route: 048
     Dates: start: 20070622, end: 20080622
  39. LITHIUM CARBONATE. [Concomitant]
     Active Substance: LITHIUM CARBONATE
     Indication: PRODUCT USED FOR UNKNOWN INDICATION
     Dosage: 1 TAB, QD (1 DF: DAYS SUPPLY: 30, QUANTITY: 30, DAYS SUPPLY: 30, QUANTITY: 60
     Route: 048
     Dates: start: 20070123, end: 20080126
  40. ARIPIPRAZOLE. [Suspect]
     Active Substance: ARIPIPRAZOLE
     Indication: MAJOR DEPRESSION
     Dosage: 30 MG, UNK (TAKE 4 TABLETS BY MOUTH EVERY MORNING FOR 14 DAYS, THEN TAKE 3 + 1/2 TABLETS EVERY MOR)
     Route: 065
     Dates: start: 2012, end: 2016
  41. ARIPIPRAZOLE. [Suspect]
     Active Substance: ARIPIPRAZOLE
     Dosage: 30 MG, UNK(TAKE 4 TABLETS BY MOUTH EVERY MORNING FOR 14 DAYS, THEN TAKE 3 + 1/2 TABLETS EVERY MOR)
     Route: 065
     Dates: end: 20130915
  42. ARIPIPRAZOLE. [Suspect]
     Active Substance: ARIPIPRAZOLE
     Dosage: 1 DF, UNK(TAKE 4 TABLETS BY MOUTH EVERY MORNING FOR 14 DAYS, THEN TAKE 3 + 1/2 TABLETS EVERY MOR)
     Route: 048
     Dates: start: 20160414
  43. ARIPIPRAZOLE. [Suspect]
     Active Substance: ARIPIPRAZOLE
     Dosage: 30 MG, QD (TAKE 4 TABLETS BY MOUTH EVERY MORNING FOR 14 DAYS, THEN TAKE 3 + 1/2 TABLETS EVERY MOR
     Route: 048
     Dates: start: 20160120, end: 20160126
  44. ARIPIPRAZOLE. [Suspect]
     Active Substance: ARIPIPRAZOLE
     Dosage: 30 MG, QD (TAKE 4 TABLETS BY MOUTH EVERY MORNING FOR 14 DAYS, THEN TAKE 3 + 1/2 TABLETS EVERY MOR
     Route: 048
     Dates: start: 20160107, end: 20160119
  45. PARLODEL [Concomitant]
     Active Substance: BROMOCRIPTINE MESYLATE
     Indication: PRODUCT USED FOR UNKNOWN INDICATION
     Dosage: UNK
     Route: 065
  46. RISPERDAL [Concomitant]
     Active Substance: RISPERIDONE
     Indication: PRODUCT USED FOR UNKNOWN INDICATION
     Dosage: UNK
     Route: 065
  47. SAPHRIS [Concomitant]
     Active Substance: ASENAPINE MALEATE
     Indication: PRODUCT USED FOR UNKNOWN INDICATION
     Dosage: UNK
     Route: 065
  48. SEROQUEL [Concomitant]
     Active Substance: QUETIAPINE FUMARATE
     Indication: PRODUCT USED FOR UNKNOWN INDICATION
     Dosage: UNK
     Route: 065
  49. FLUOXETINE HCL [Concomitant]
     Active Substance: FLUOXETINE HYDROCHLORIDE
     Indication: PRODUCT USED FOR UNKNOWN INDICATION
     Dosage: 1 DF, QD (1DF=TWO CAPSULES, 1 DF= 3 CAP, 1 DF: DAYS SUPPLY: 30, QUANTITY: 90, 1 DF: 1 CAP)
     Route: 048
     Dates: start: 20140605, end: 20140606
  50. FLUOXETINE HCL [Concomitant]
     Active Substance: FLUOXETINE HYDROCHLORIDE
     Indication: PRODUCT USED FOR UNKNOWN INDICATION
     Dosage: 1 DF, QD (1DF=TWO CAPSULES, 1 DF= 3 CAP, 1 DF: DAYS SUPPLY: 30, QUANTITY: 90, 1 DF: 1 CAP)
     Route: 048
     Dates: start: 20130129, end: 20140130
  51. FLUOXETINE HCL [Concomitant]
     Active Substance: FLUOXETINE HYDROCHLORIDE
     Indication: PRODUCT USED FOR UNKNOWN INDICATION
     Dosage: 1 DF, QD (1DF=TWO CAPSULES, 1 DF= 3 CAP, 1 DF: DAYS SUPPLY: 30, QUANTITY: 90, 1 DF: 1 CAP)
     Route: 048
     Dates: start: 20120808, end: 20130809
  52. BUPROPION HCL [Concomitant]
     Active Substance: BUPROPION HYDROCHLORIDE
     Indication: PRODUCT USED FOR UNKNOWN INDICATION
     Dosage: 100 MG, BID(BUPROPION HCL 100MG 12HR SA TAB, TAKE DNP TART.PT BY MOUTH EVERY MORN FOR MOOD OR SMOKIN
     Route: 048
     Dates: start: 20160806
  53. BUPROPION HCL [Concomitant]
     Active Substance: BUPROPION HYDROCHLORIDE
     Indication: PRODUCT USED FOR UNKNOWN INDICATION
     Dosage: 1 TAB, BID(BUPROPION HCL 100MG 12HR SA TAB, TAKE DNP TART.PT BY MOUTH EVERY MORN FOR MOOD OR SMOKING
     Route: 048
     Dates: start: 20141007, end: 20151008
  54. BUPROPION HCL [Concomitant]
     Active Substance: BUPROPION HYDROCHLORIDE
     Indication: PRODUCT USED FOR UNKNOWN INDICATION
     Dosage: 1 TAB, QD(BUPROPION HCL 100MG 12HR SA TAB, TAKE DNP TART.PT BY MOUTH EVERY MORN FOR MOOD OR SMOKING,
     Route: 048
     Dates: start: 20140131, end: 20150201
  55. BUPROPION HCL [Concomitant]
     Active Substance: BUPROPION HYDROCHLORIDE
     Indication: PRODUCT USED FOR UNKNOWN INDICATION
     Dosage: 1 TAB, QD(BUPROPION HCL 100MG 12HR SA TAB, TAKE DNP TART.PT BY MOUTH EVERY MORN FOR MOOD OR SMOKING,
     Route: 048
     Dates: start: 20130129, end: 20140130
  56. BUPROPION HCL [Concomitant]
     Active Substance: BUPROPION HYDROCHLORIDE
     Indication: PRODUCT USED FOR UNKNOWN INDICATION
     Dosage: 1 TAB, QD(BUPROPION HCL 100MG 12HR SA TAB, TAKE DNP TART.PT BY MOUTH EVERY MORN FOR MOOD OR SMOKING,
     Route: 048
     Dates: start: 20111227, end: 20121227
  57. BUPROPION HCL [Concomitant]
     Active Substance: BUPROPION HYDROCHLORIDE
     Indication: PRODUCT USED FOR UNKNOWN INDICATION
     Dosage: 1 TAB, QD(BUPROPION HCL 100MG 12HR SA TAB, TAKE DNP TART.PT BY MOUTH EVERY MORN FOR MOOD OR SMOKING,
     Route: 048
     Dates: start: 20111031, end: 20121031
  58. BUPROPION HCL [Concomitant]
     Active Substance: BUPROPION HYDROCHLORIDE
     Indication: PRODUCT USED FOR UNKNOWN INDICATION
     Dosage: 1 TAB, QD(BUPROPION HCL 100MG 12HR SA TAB, TAKE DNP TART.PT BY MOUTH EVERY MORN FOR MOOD OR SMOKING,
     Route: 048
     Dates: start: 20110228, end: 20120229
  59. MONTELUKAST [Concomitant]
     Active Substance: MONTELUKAST SODIUM
     Indication: PRODUCT USED FOR UNKNOWN INDICATION
     Dosage: 1 DF, QD
     Route: 048
     Dates: start: 20160420
  60. MONTELUKAST [Concomitant]
     Active Substance: MONTELUKAST SODIUM
     Indication: PRODUCT USED FOR UNKNOWN INDICATION
     Dosage: 10 MG, QD
     Route: 048
     Dates: start: 20160120, end: 20160126
  61. MONTELUKAST [Concomitant]
     Active Substance: MONTELUKAST SODIUM
     Indication: PRODUCT USED FOR UNKNOWN INDICATION
     Dosage: 10 MG, UNK
     Route: 048
     Dates: start: 20160119, end: 20160119
  62. OMEPRAZOLE. [Concomitant]
     Active Substance: OMEPRAZOLE
     Indication: PRODUCT USED FOR UNKNOWN INDICATION
     Dosage: 20 MG,UNK(1DF=TWO CAPSULES BY MOUTH DAILY 1 HR PRIOR TO FIRST MEAL OF THE DAY FOR STOMACH,1DF=1 CAP)
     Route: 065
     Dates: end: 20161023
  63. OMEPRAZOLE. [Concomitant]
     Active Substance: OMEPRAZOLE
     Indication: PRODUCT USED FOR UNKNOWN INDICATION
     Dosage: 1 DF, QD (1DF=TWO CAPSULES BY MOUTH DAILY 1 HR PRIOR TO FIRST MEAL OF THE DAY FOR STOMACH,1DF=1 CAP
     Route: 048
     Dates: start: 20150526, end: 20160526
  64. OMEPRAZOLE. [Concomitant]
     Active Substance: OMEPRAZOLE
     Indication: PRODUCT USED FOR UNKNOWN INDICATION
     Dosage: 1 DF, QD(1DF=TWO CAPSULES BY MOUTH DAILY 1 HR PRIOR TO FIRST MEAL OF THE DAY FOR STOMACH,1DF=1 CAP
     Route: 048
     Dates: start: 20100617, end: 20100915
  65. SIMVASTATIN. [Concomitant]
     Active Substance: SIMVASTATIN
     Indication: BLOOD CHOLESTEROL
     Dosage: 80 MG, UNK (1DF=ONE-HALF TABLET)
     Route: 065
     Dates: end: 20161023
  66. SIMVASTATIN. [Concomitant]
     Active Substance: SIMVASTATIN
     Indication: PRODUCT USED FOR UNKNOWN INDICATION
     Dosage: 1 DF, QD (1DF=ONE-HALF TABLET)
     Route: 048
     Dates: start: 20160615
  67. SIMVASTATIN. [Concomitant]
     Active Substance: SIMVASTATIN
     Indication: PRODUCT USED FOR UNKNOWN INDICATION
     Dosage: 1 DF, QD (1DF=ONE-HALF TABLET)
     Route: 048
     Dates: start: 20160223
  68. HYDROXYZINE PAMOATE. [Concomitant]
     Active Substance: HYDROXYZINE PAMOATE
     Indication: ANXIETY
     Dosage: 25 MG, UNK (1 DF=01 CAP)
     Route: 065
     Dates: end: 20160925
  69. HYDROXYZINE PAMOATE. [Concomitant]
     Active Substance: HYDROXYZINE PAMOATE
     Indication: PRODUCT USED FOR UNKNOWN INDICATION
     Dosage: 1 DF, PRN (1 DF=01 CAP)
     Route: 048
     Dates: start: 20160126, end: 20170126
  70. HYDROXYZINE PAMOATE. [Concomitant]
     Active Substance: HYDROXYZINE PAMOATE
     Indication: PRODUCT USED FOR UNKNOWN INDICATION
     Dosage: 1 DF, BID (1 DF=01 CAP)
     Route: 048
     Dates: start: 20100617, end: 20110618
  71. HYDROXYZINE PAMOATE. [Concomitant]
     Active Substance: HYDROXYZINE PAMOATE
     Indication: PRODUCT USED FOR UNKNOWN INDICATION
     Dosage: 1 DF, BID  (1 DF=01 CAP)
     Route: 048
     Dates: start: 20081023, end: 20091024
  72. BUSPIRONE HCL [Concomitant]
     Active Substance: BUSPIRONE HYDROCHLORIDE
     Indication: PRODUCT USED FOR UNKNOWN INDICATION
     Dosage: 5 MG, UNK(DAYS SUPPLY: 30, QUANTITY: 30, DAYS SUPPLY: 30, QUANTITY: 90)
     Route: 065
     Dates: end: 20150201
  73. BUSPIRONE HCL [Concomitant]
     Active Substance: BUSPIRONE HYDROCHLORIDE
     Indication: PRODUCT USED FOR UNKNOWN INDICATION
     Dosage: 1 TAB, TID (DAYS SUPPLY: 30, QUANTITY: 30, DAYS SUPPLY: 30, QUANTITY: 90)
     Route: 048
     Dates: start: 20160803
  74. BUSPIRONE HCL [Concomitant]
     Active Substance: BUSPIRONE HYDROCHLORIDE
     Indication: PRODUCT USED FOR UNKNOWN INDICATION
     Dosage: 1 TAB, TID (DAYS SUPPLY: 30, QUANTITY: 30, DAYS SUPPLY: 30, QUANTITY: 90)
     Route: 048
     Dates: start: 20140131, end: 20150201
  75. BUSPIRONE HCL [Concomitant]
     Active Substance: BUSPIRONE HYDROCHLORIDE
     Indication: PRODUCT USED FOR UNKNOWN INDICATION
     Dosage: 1 TAB, TID (DAYS SUPPLY: 30, QUANTITY: 30, DAYS SUPPLY: 30, QUANTITY: 90)
     Route: 048
     Dates: start: 20101217, end: 20111218
  76. ACETAMINOPHEN. [Concomitant]
     Active Substance: ACETAMINOPHEN
     Indication: PRODUCT USED FOR UNKNOWN INDICATION
     Dosage: 2 DF, BID
     Route: 048
     Dates: start: 20160223, end: 20160324
  77. ACETAMINOPHEN. [Concomitant]
     Active Substance: ACETAMINOPHEN
     Indication: PRODUCT USED FOR UNKNOWN INDICATION
     Dosage: 650 MG, PRN
     Route: 048
     Dates: start: 20070123, end: 20070126
  78. METHYLPREDNISOLONE. [Concomitant]
     Active Substance: METHYLPREDNISOLONE
     Indication: INFLAMMATION
     Dosage: UNK (DOSEPAK,21 1DF=TABLETS)
     Route: 065
     Dates: end: 20131011
  79. RISPERIDONE. [Concomitant]
     Active Substance: RISPERIDONE
     Indication: PRODUCT USED FOR UNKNOWN INDICATION
     Dosage: 1 DF, QD
     Route: 048
     Dates: start: 20111031, end: 20121031
  80. LITHIUM CARBONATE. [Concomitant]
     Active Substance: LITHIUM CARBONATE
     Indication: MENTAL DISORDER
     Dosage: 450 MG, 1 DF: DAYS SUPPLY: 30, QUANTITY: 30, DAYS SUPPLY: 30, QUANTITY: 60
     Route: 065
     Dates: end: 20121227
  81. LITHIUM CARBONATE. [Concomitant]
     Active Substance: LITHIUM CARBONATE
     Indication: PRODUCT USED FOR UNKNOWN INDICATION
     Dosage: 1 TAB, QD (1 DF: DAYS SUPPLY: 30, QUANTITY: 30, DAYS SUPPLY: 30, QUANTITY: 60
     Route: 048
     Dates: start: 20090218, end: 20100219
  82. MELOXICAM. [Concomitant]
     Active Substance: MELOXICAM
     Indication: PRODUCT USED FOR UNKNOWN INDICATION
     Route: 065
  83. BETIMOL [Concomitant]
     Active Substance: TIMOLOL
     Indication: PRODUCT USED FOR UNKNOWN INDICATION
     Route: 065
  84. METHYLPRED [Concomitant]
     Active Substance: METHYLPREDNISOLONE
     Indication: PRODUCT USED FOR UNKNOWN INDICATION
     Dosage: UNK
     Route: 065
  85. ARIPIPRAZOLE. [Suspect]
     Active Substance: ARIPIPRAZOLE
     Indication: PRODUCT USED FOR UNKNOWN INDICATION
     Dosage: 7.5 MG,UNK (FOUR TABLETS BY MOUTH EVERY MORNING FOR 14 DAYS, THEN TAKE 3 + 1/2 EVERY MORNING)
     Route: 065
     Dates: start: 2012, end: 2016
  86. ARIPIPRAZOLE. [Suspect]
     Active Substance: ARIPIPRAZOLE
     Indication: MENTAL DISORDER
     Dosage: 25 MG, UNK (TAKE 4 TABLETS BY MOUTH EVERY MORNING FOR 14 DAYS, THEN TAKE 3 + 1/2 TABLETS EVERY MOR)
     Route: 065
     Dates: start: 2012, end: 2016
  87. ARIPIPRAZOLE. [Suspect]
     Active Substance: ARIPIPRAZOLE
     Dosage: 30 MG, UNK(TAKE 4 TABLETS BY MOUTH EVERY MORNING FOR 14 DAYS, THEN TAKE 3 + 1/2 TABLETS EVERY MOR)
     Route: 065
     Dates: end: 20140727
  88. ARIPIPRAZOLE. [Suspect]
     Active Substance: ARIPIPRAZOLE
     Dosage: 15 MG, QD (TAKE 4 TABLETS BY MOUTH EVERY MORNING FOR 14 DAYS, THEN TAKE 3 + 1/2 TABLETS EVERY MOR
     Route: 048
     Dates: start: 20160119, end: 20160126
  89. ARIPIPRAZOLE. [Suspect]
     Active Substance: ARIPIPRAZOLE
     Dosage: 30 MG, QD (TAKE 4 TABLETS BY MOUTH EVERY MORNING FOR 14 DAYS, THEN TAKE 3 + 1/2 TABLETS EVERY MOR
     Route: 048
     Dates: start: 20141212, end: 20151213
  90. ARIPIPRAZOLE. [Suspect]
     Active Substance: ARIPIPRAZOLE
     Dosage: 1 TAB, QD (TAKE 4 TABLETS BY MOUTH EVERY MORNING FOR 14 DAYS, THEN TAKE 3 + 1/2 TABLETS EVERY MOR
     Route: 048
     Dates: start: 20141007, end: 20151008
  91. ARIPIPRAZOLE. [Suspect]
     Active Substance: ARIPIPRAZOLE
     Dosage: 1 TAB, QD (TAKE 4 TABLETS BY MOUTH EVERY MORNING FOR 14 DAYS, THEN TAKE 3 + 1/2 TABLETS EVERY MOR)
     Route: 048
     Dates: start: 20140605, end: 20150606
  92. LATUDA [Concomitant]
     Active Substance: LURASIDONE HYDROCHLORIDE
     Indication: PRODUCT USED FOR UNKNOWN INDICATION
     Dosage: UNK
     Route: 065
  93. THORAZINE [Concomitant]
     Active Substance: CHLORPROMAZINE
     Indication: PRODUCT USED FOR UNKNOWN INDICATION
     Dosage: UNK
     Route: 065
  94. FLUOXETINE HCL [Concomitant]
     Active Substance: FLUOXETINE HYDROCHLORIDE
     Indication: PRODUCT USED FOR UNKNOWN INDICATION
     Dosage: 1 DF, QD (1DF=TWO CAPSULES, 1 DF= 3 CAP, 1 DF: DAYS SUPPLY: 30, QUANTITY: 90, 1 DF: 1 CAP)
     Route: 048
     Dates: start: 20120529, end: 20130530
  95. BUPROPION HCL [Concomitant]
     Active Substance: BUPROPION HYDROCHLORIDE
     Indication: PRODUCT USED FOR UNKNOWN INDICATION
     Dosage: 1 TAB, BID(BUPROPION HCL 100MG 12HR SA TAB, TAKE DNP TART.PT BY MOUTH EVERY MORN FOR MOOD OR SMOKING
     Route: 048
     Dates: start: 20160414
  96. BUPROPION HCL [Concomitant]
     Active Substance: BUPROPION HYDROCHLORIDE
     Indication: PRODUCT USED FOR UNKNOWN INDICATION
     Dosage: 100 MG, QD (BUPROPION HCL 100MG 12HR SA TAB, TAKE DNP TART.PT BY MOUTH EVERY MORN FOR MOOD OR SMOKIN
     Route: 048
     Dates: start: 20160106, end: 20160107
  97. BUPROPION HCL [Concomitant]
     Active Substance: BUPROPION HYDROCHLORIDE
     Indication: PRODUCT USED FOR UNKNOWN INDICATION
     Dosage: 1 TAB, QD(BUPROPION HCL 100MG 12HR SA TAB, TAKE DNP TART.PT BY MOUTH EVERY MORN FOR MOOD OR SMOKING,
     Route: 048
     Dates: start: 20140605, end: 20150606
  98. BUPROPION HCL [Concomitant]
     Active Substance: BUPROPION HYDROCHLORIDE
     Indication: PRODUCT USED FOR UNKNOWN INDICATION
     Dosage: 1 TAB, QD(BUPROPION HCL 100MG 12HR SA TAB, TAKE DNP TART.PT BY MOUTH EVERY MORN FOR MOOD OR SMOKING,
     Route: 048
     Dates: start: 20130802, end: 20140803
  99. LISINOPRIL. [Concomitant]
     Active Substance: LISINOPRIL
     Indication: BLOOD PRESSURE MEASUREMENT
     Dosage: 40 MG, UNK  (1DF=ONE-HALF TABLET)
     Route: 065
     Dates: end: 20160126
  100. LISINOPRIL. [Concomitant]
     Active Substance: LISINOPRIL
     Indication: PRODUCT USED FOR UNKNOWN INDICATION
     Dosage: UNK  (1DF=ONE-HALF TABLET)
     Route: 065
     Dates: end: 20160112
  101. OMEPRAZOLE. [Concomitant]
     Active Substance: OMEPRAZOLE
     Indication: PRODUCT USED FOR UNKNOWN INDICATION
     Dosage: 1 DF, QD(1DF=TWO CAPSULES BY MOUTH DAILY 1 HR PRIOR TO FIRST MEAL OF THE DAY FOR STOMACH,1DF=1 CAP
     Route: 048
     Dates: start: 20160420
  102. OMEPRAZOLE. [Concomitant]
     Active Substance: OMEPRAZOLE
     Indication: PRODUCT USED FOR UNKNOWN INDICATION
     Dosage: 1 DF, QD(1DF=TWO CAPSULES BY MOUTH DAILY 1 HR PRIOR TO FIRST MEAL OF THE DAY FOR STOMACH,1DF=1 CAP
     Route: 048
     Dates: start: 20090610, end: 20100611
  103. HYDROXYZINE PAMOATE. [Concomitant]
     Active Substance: HYDROXYZINE PAMOATE
     Indication: PRODUCT USED FOR UNKNOWN INDICATION
     Dosage: 1 DF, PRN(1 DF=01 CAP)
     Route: 048
     Dates: start: 20160304
  104. HYDROXYZINE PAMOATE. [Concomitant]
     Active Substance: HYDROXYZINE PAMOATE
     Indication: PRODUCT USED FOR UNKNOWN INDICATION
     Dosage: 1 DF, BID (1 DF=01 CAP)
     Route: 048
     Dates: start: 20100113, end: 20110114
  105. BUSPIRONE HCL [Concomitant]
     Active Substance: BUSPIRONE HYDROCHLORIDE
     Indication: PRODUCT USED FOR UNKNOWN INDICATION
     Dosage: 1 TAB, TID (DAYS SUPPLY: 30, QUANTITY: 30, DAYS SUPPLY: 30, QUANTITY: 90)
     Route: 048
     Dates: start: 20160126, end: 20170126
  106. BUSPIRONE HCL [Concomitant]
     Active Substance: BUSPIRONE HYDROCHLORIDE
     Indication: PRODUCT USED FOR UNKNOWN INDICATION
     Dosage: 1 TAB, TID (DAYS SUPPLY: 30, QUANTITY: 30, DAYS SUPPLY: 30, QUANTITY: 90)
     Route: 048
     Dates: start: 20130802, end: 20140803
  107. BUSPIRONE HCL [Concomitant]
     Active Substance: BUSPIRONE HYDROCHLORIDE
     Indication: PRODUCT USED FOR UNKNOWN INDICATION
     Dosage: 1 TAB, TID (DAYS SUPPLY: 30, QUANTITY: 30, DAYS SUPPLY: 30, QUANTITY: 90)
     Route: 048
     Dates: start: 20121029, end: 20131030
  108. BUSPIRONE HCL [Concomitant]
     Active Substance: BUSPIRONE HYDROCHLORIDE
     Indication: PRODUCT USED FOR UNKNOWN INDICATION
     Dosage: 1 TAB, TID (DAYS SUPPLY: 30, QUANTITY: 30, DAYS SUPPLY: 30, QUANTITY: 90)
     Route: 048
     Dates: start: 20120529, end: 20130530
  109. BUSPIRONE HCL [Concomitant]
     Active Substance: BUSPIRONE HYDROCHLORIDE
     Indication: PRODUCT USED FOR UNKNOWN INDICATION
     Dosage: 1 TAB, TID (DAYS SUPPLY: 30, QUANTITY: 30, DAYS SUPPLY: 30, QUANTITY: 90)
     Route: 048
     Dates: start: 20111031, end: 20121031
  110. SILDENAFIL CITRATE. [Concomitant]
     Active Substance: SILDENAFIL CITRATE
     Indication: PRODUCT USED FOR UNKNOWN INDICATION
     Dosage: 1 DF, PRN (1DF= ONE-HALF TABLET)
     Route: 048
     Dates: start: 20160212
  111. ONDANSETRON [Concomitant]
     Active Substance: ONDANSETRON
     Dosage: 4 MG, PRN
     Route: 048
     Dates: start: 20160108, end: 20160126
  112. ACETAMINOPHEN. [Concomitant]
     Active Substance: ACETAMINOPHEN
     Indication: PRODUCT USED FOR UNKNOWN INDICATION
     Dosage: UNK
     Route: 065
     Dates: end: 20160126
  113. ACETAMINOPHEN. [Concomitant]
     Active Substance: ACETAMINOPHEN
     Indication: PRODUCT USED FOR UNKNOWN INDICATION
     Dosage: 1000 MG, PRN
     Route: 048
     Dates: start: 20160108, end: 20160126
  114. LOVASTATIN. [Concomitant]
     Active Substance: LOVASTATIN
     Indication: PRODUCT USED FOR UNKNOWN INDICATION
     Dosage: 1 DF, QD
     Route: 048
     Dates: start: 20150220, end: 20160221
  115. NAPROXEN. [Concomitant]
     Active Substance: NAPROXEN
     Indication: PRODUCT USED FOR UNKNOWN INDICATION
     Dosage: 500 MG, BID
     Route: 048
     Dates: start: 20070123, end: 20070126
  116. PROMETHAZINE HCL [Concomitant]
     Active Substance: PROMETHAZINE HYDROCHLORIDE
     Dosage: 1 DF, BID
     Route: 048
     Dates: start: 20151023, end: 20151122
  117. RISPERIDONE. [Concomitant]
     Active Substance: RISPERIDONE
     Indication: PRODUCT USED FOR UNKNOWN INDICATION
     Dosage: UNK
     Route: 065
  118. LITHIUM CARBONATE. [Concomitant]
     Active Substance: LITHIUM CARBONATE
     Indication: PRODUCT USED FOR UNKNOWN INDICATION
     Dosage: 1 TAB, QD (1 DF: DAYS SUPPLY: 30, QUANTITY: 30, DAYS SUPPLY: 30, QUANTITY: 60)
     Route: 048
     Dates: start: 20111227, end: 20121227
  119. LITHIUM CARBONATE. [Concomitant]
     Active Substance: LITHIUM CARBONATE
     Indication: PRODUCT USED FOR UNKNOWN INDICATION
     Dosage: 1 TAB, QD (1 DF: DAYS SUPPLY: 30, QUANTITY: 30, DAYS SUPPLY: 30, QUANTITY: 60
     Route: 048
     Dates: start: 20091230, end: 20101231
  120. LITHIUM CARBONATE. [Concomitant]
     Active Substance: LITHIUM CARBONATE
     Indication: PRODUCT USED FOR UNKNOWN INDICATION
     Dosage: 1 TAB, QD (1 DF: DAYS SUPPLY: 30, QUANTITY: 30, DAYS SUPPLY: 30, QUANTITY: 60
     Route: 048
     Dates: start: 20080915, end: 20090916
  121. LITHIUM CARBONATE. [Concomitant]
     Active Substance: LITHIUM CARBONATE
     Indication: PRODUCT USED FOR UNKNOWN INDICATION
     Dosage: 1 TAB, QD (1 DF: DAYS SUPPLY: 30, QUANTITY: 30, DAYS SUPPLY: 30, QUANTITY: 60
     Route: 048
     Dates: start: 20070918, end: 20080918
  122. ARIPIPRAZOLE. [Suspect]
     Active Substance: ARIPIPRAZOLE
     Dosage: 1 DF, UNK(TAKE 4 TABLETS BY MOUTH EVERY MORNING FOR 14 DAYS, THEN TAKE 3 + 1/2 TABLETS EVERY MOR)
     Route: 048
     Dates: start: 20160801
  123. ARIPIPRAZOLE. [Suspect]
     Active Substance: ARIPIPRAZOLE
     Dosage: 1 TAB, QD (TAKE 4 TABLETS BY MOUTH EVERY MORNING FOR 14 DAYS, THEN TAKE 3 + 1/2 TABLETS EVERY MOR)
     Route: 048
     Dates: start: 20130726, end: 20140727
  124. ARIPIPRAZOLE. [Suspect]
     Active Substance: ARIPIPRAZOLE
     Dosage: 1 DF, QD (TAKE 4 TABLETS BY MOUTH EVERY MORNING FOR 14 DAYS, THEN TAKE 3 + 1/2 TABLETS EVERY MOR)
     Route: 048
     Dates: start: 20121029, end: 20131030
  125. ARIPIPRAZOLE. [Suspect]
     Active Substance: ARIPIPRAZOLE
     Dosage: 1 DF, QD (TAKE 4 TABLETS BY MOUTH EVERY MORNING FOR 14 DAYS, THEN TAKE 3 + 1/2 TABLETS EVERY MOR)
     Route: 048
     Dates: start: 20120529, end: 20130530
  126. ROTIGOTINE [Concomitant]
     Active Substance: ROTIGOTINE
     Indication: PRODUCT USED FOR UNKNOWN INDICATION
     Dosage: UNK
     Route: 065
  127. APOKYN [Concomitant]
     Active Substance: APOMORPHINE HYDROCHLORIDE
     Indication: PRODUCT USED FOR UNKNOWN INDICATION
     Dosage: UNK
     Route: 065
  128. GEODON [Concomitant]
     Active Substance: ZIPRASIDONE HYDROCHLORIDE\ZIPRASIDONE MESYLATE
     Indication: PRODUCT USED FOR UNKNOWN INDICATION
     Dosage: UNK
     Route: 065
  129. INVEGA [Concomitant]
     Active Substance: PALIPERIDONE
     Indication: PRODUCT USED FOR UNKNOWN INDICATION
     Dosage: UNK
     Route: 065
  130. FLUOXETINE HCL [Concomitant]
     Active Substance: FLUOXETINE HYDROCHLORIDE
     Indication: PRODUCT USED FOR UNKNOWN INDICATION
     Dosage: 1 DF, BID (1DF=TWO CAPSULES, 1 DF= 3 CAP, 1 DF: DAYS SUPPLY: 30, QUANTITY: 90, 1 DF: 1 CAP)
     Route: 048
     Dates: start: 20160223
  131. FLUOXETINE HCL [Concomitant]
     Active Substance: FLUOXETINE HYDROCHLORIDE
     Indication: PRODUCT USED FOR UNKNOWN INDICATION
     Dosage: 40 MG, QD (1DF=TWO CAPSULES, 1 DF= 3 CAP, 1 DF: DAYS SUPPLY: 30, QUANTITY: 90, 1 DF: 1 CAP)
     Route: 048
     Dates: start: 20160107, end: 20160107
  132. FLUOXETINE HCL [Concomitant]
     Active Substance: FLUOXETINE HYDROCHLORIDE
     Indication: PRODUCT USED FOR UNKNOWN INDICATION
     Dosage: 1 DF, QD (1DF=TWO CAPSULES, 1 DF= 3 CAP, 1 DF: DAYS SUPPLY: 30, QUANTITY: 90, 1 DF: 1 CAP)
     Route: 048
     Dates: start: 20141212, end: 20151213
  133. FLUOXETINE HCL [Concomitant]
     Active Substance: FLUOXETINE HYDROCHLORIDE
     Indication: PRODUCT USED FOR UNKNOWN INDICATION
     Dosage: 1 DF, QD (1DF=TWO CAPSULES, 1 DF= 3 CAP, 1 DF: DAYS SUPPLY: 30, QUANTITY: 90, 1 DF: 1 CAP)
     Route: 048
     Dates: start: 20121029, end: 20131030
  134. BUPROPION HCL [Concomitant]
     Active Substance: BUPROPION HYDROCHLORIDE
     Indication: PRODUCT USED FOR UNKNOWN INDICATION
     Dosage: UNK (BUPROPION HCL 100MG 12HR SA TAB, TAKE DNP TART.PT BY MOUTH EVERY MORN FOR MOOD OR SMOKING, CESS
     Route: 065
     Dates: end: 20160107
  135. BUPROPION HCL [Concomitant]
     Active Substance: BUPROPION HYDROCHLORIDE
     Indication: PRODUCT USED FOR UNKNOWN INDICATION
     Dosage: 1 TAB, BID(BUPROPION HCL 100MG 12HR SA TAB, TAKE DNP TART.PT BY MOUTH EVERY MORN FOR MOOD OR SMOKING
     Route: 048
     Dates: start: 20160801
  136. BUPROPION HCL [Concomitant]
     Active Substance: BUPROPION HYDROCHLORIDE
     Indication: PRODUCT USED FOR UNKNOWN INDICATION
     Dosage: 1 TAB, BID(BUPROPION HCL 100MG 12HR SA TAB, TAKE DNP TART.PT BY MOUTH EVERY MORN FOR MOOD OR SMOKING
     Route: 048
     Dates: start: 20160223
  137. BUPROPION HCL [Concomitant]
     Active Substance: BUPROPION HYDROCHLORIDE
     Indication: PRODUCT USED FOR UNKNOWN INDICATION
     Dosage: 1 TAB, QD(BUPROPION HCL 100MG 12HR SA TAB, TAKE DNP TART.PT BY MOUTH EVERY MORN FOR MOOD OR SMOKING,
     Route: 048
     Dates: start: 20121029, end: 20131030
  138. LORATADINE. [Concomitant]
     Active Substance: LORATADINE
     Indication: PRODUCT USED FOR UNKNOWN INDICATION
     Dosage: 1 DF, QD
     Route: 048
     Dates: start: 20041006, end: 20041105
  139. OMEPRAZOLE. [Concomitant]
     Active Substance: OMEPRAZOLE
     Indication: PRODUCT USED FOR UNKNOWN INDICATION
     Dosage: 1 DF, QD(1DF=TWO CAPSULES BY MOUTH DAILY 1 HR PRIOR TO FIRST MEAL OF THE DAY FOR STOMACH,1DF=1 CAP
     Route: 048
     Dates: start: 20151023, end: 20161023
  140. OMEPRAZOLE. [Concomitant]
     Active Substance: OMEPRAZOLE
     Indication: PRODUCT USED FOR UNKNOWN INDICATION
     Dosage: 1 DF, QD(1DF=TWO CAPSULES BY MOUTH DAILY 1 HR PRIOR TO FIRST MEAL OF THE DAY FOR STOMACH,1DF=1 CAP
     Route: 048
     Dates: start: 20130108, end: 20140109
  141. OMEPRAZOLE. [Concomitant]
     Active Substance: OMEPRAZOLE
     Indication: PRODUCT USED FOR UNKNOWN INDICATION
     Dosage: 20 MG, QD(1DF=TWO CAPSULES BY MOUTH DAILY 1 HR PRIOR TO FIRST MEAL OF THE DAY FOR STOMACH,1DF=1 CAP
     Route: 048
     Dates: start: 20141111
  142. OMEPRAZOLE. [Concomitant]
     Active Substance: OMEPRAZOLE
     Indication: PRODUCT USED FOR UNKNOWN INDICATION
     Dosage: 1 DF, QD(1DF=TWO CAPSULES BY MOUTH DAILY 1 HR PRIOR TO FIRST MEAL OF THE DAY FOR STOMACH,1DF=1 CAP
     Route: 048
     Dates: start: 20101130, end: 20111201
  143. OMEPRAZOLE. [Concomitant]
     Active Substance: OMEPRAZOLE
     Indication: PRODUCT USED FOR UNKNOWN INDICATION
     Dosage: 1 DF, QD(1DF=TWO CAPSULES BY MOUTH DAILY 1 HR PRIOR TO FIRST MEAL OF THE DAY FOR STOMACH,1DF=1 CAP
     Route: 048
     Dates: start: 20091118, end: 20101119
  144. OMEPRAZOLE. [Concomitant]
     Active Substance: OMEPRAZOLE
     Indication: PRODUCT USED FOR UNKNOWN INDICATION
     Dosage: 1 DF, QD(1DF=TWO CAPSULES BY MOUTH DAILY 1 HR PRIOR TO FIRST MEAL OF THE DAY FOR STOMACH,1DF=1 CAP
     Route: 048
     Dates: start: 20080528, end: 20090529
  145. HYDROXYZINE PAMOATE. [Concomitant]
     Active Substance: HYDROXYZINE PAMOATE
     Indication: PRODUCT USED FOR UNKNOWN INDICATION
     Dosage: UNK (1 DF=01 CAP)
     Route: 048
     Dates: end: 20160126
  146. BUSPIRONE HCL [Concomitant]
     Active Substance: BUSPIRONE HYDROCHLORIDE
     Indication: PRODUCT USED FOR UNKNOWN INDICATION
     Dosage: 1 TAB, TID (DAYS SUPPLY: 30, QUANTITY: 30, DAYS SUPPLY: 30, QUANTITY: 90)
     Route: 048
     Dates: start: 20120808, end: 20130809
  147. BUSPIRONE HCL [Concomitant]
     Active Substance: BUSPIRONE HYDROCHLORIDE
     Indication: PRODUCT USED FOR UNKNOWN INDICATION
     Dosage: 1 TAB, TID (DAYS SUPPLY: 30, QUANTITY: 30, DAYS SUPPLY: 30, QUANTITY: 90)
     Route: 065
     Dates: start: 20110228, end: 20120229
  148. ACETAMINOPHEN. [Concomitant]
     Active Substance: ACETAMINOPHEN
     Indication: PRODUCT USED FOR UNKNOWN INDICATION
     Dosage: 2 DF, BID
     Route: 048
     Dates: start: 20160126, end: 20170126
  149. CYCLOBENZAPRINE HCL [Concomitant]
     Active Substance: CYCLOBENZAPRINE HYDROCHLORIDE
     Indication: MUSCLE RELAXANT THERAPY
     Dosage: 1 DF, PRN
     Route: 065
     Dates: start: 20140506, end: 20140605
  150. LITHIUM CARBONATE. [Concomitant]
     Active Substance: LITHIUM CARBONATE
     Indication: PRODUCT USED FOR UNKNOWN INDICATION
     Dosage: 1 TAB, QD (1 DF: DAYS SUPPLY: 30, QUANTITY: 30, DAYS SUPPLY: 30, QUANTITY: 60
     Route: 048
     Dates: start: 20100617, end: 20110618
  151. CLOTRIMAZOLE AND BETAMETHASONE [Concomitant]
     Active Substance: BETAMETHASONE\CLOTRIMAZOLE
     Indication: PRODUCT USED FOR UNKNOWN INDICATION
     Route: 065
  152. ARIPIPRAZOLE. [Suspect]
     Active Substance: ARIPIPRAZOLE
     Dosage: 30 MG, UNK(TAKE 4 TABLETS BY MOUTH EVERY MORNING FOR 14 DAYS, THEN TAKE 3 + 1/2 TABLETS EVERY MOR)
     Route: 065
     Dates: end: 20160126
  153. ARIPIPRAZOLE. [Suspect]
     Active Substance: ARIPIPRAZOLE
     Dosage: 30 MG, UNK(TAKE 4 TABLETS BY MOUTH EVERY MORNING FOR 14 DAYS, THEN TAKE 3 + 1/2 TABLETS EVERY MOR)
     Route: 065
     Dates: end: 20131030
  154. ARIPIPRAZOLE. [Suspect]
     Active Substance: ARIPIPRAZOLE
     Dosage: 10 MG, UNK(TAKE 4 TABLETS BY MOUTH EVERY MORNING FOR 14 DAYS, THEN TAKE 3 + 1/2 TABLETS EVERY MOR)
     Route: 048
     Dates: end: 20160803
  155. ARIPIPRAZOLE. [Suspect]
     Active Substance: ARIPIPRAZOLE
     Dosage: 1 TAB, QD (TAKE 4 TABLETS BY MOUTH EVERY MORNING FOR 14 DAYS, THEN TAKE 3 + 1/2 TABLETS EVERY MOR
     Route: 048
     Dates: start: 20150925, end: 20160925
  156. FAZACLO [Concomitant]
     Active Substance: CLOZAPINE
     Indication: PRODUCT USED FOR UNKNOWN INDICATION
     Dosage: UNK
     Route: 065
  157. FLUOXETINE HCL [Concomitant]
     Active Substance: FLUOXETINE HYDROCHLORIDE
     Indication: DEPRESSION
     Dosage: UNK (1DF=TWO CAPSULES, 1 DF= 3 CAP, 1 DF: DAYS SUPPLY: 30, QUANTITY: 90, 1 DF: 1 CAP)
     Route: 065
     Dates: end: 20160513
  158. FLUOXETINE HCL [Concomitant]
     Active Substance: FLUOXETINE HYDROCHLORIDE
     Indication: PRODUCT USED FOR UNKNOWN INDICATION
     Dosage: 1 DF, BID (1DF=TWO CAPSULES, 1 DF= 3 CAP, 1 DF: DAYS SUPPLY: 30, QUANTITY: 90, 1 DF: 1 CAP)
     Route: 048
     Dates: start: 20160414
  159. FLUOXETINE HCL [Concomitant]
     Active Substance: FLUOXETINE HYDROCHLORIDE
     Indication: PRODUCT USED FOR UNKNOWN INDICATION
     Dosage: 1 DF, BID (1DF=TWO CAPSULES, 1 DF= 3 CAP, 1 DF: DAYS SUPPLY: 30, QUANTITY: 90, 1 DF: 1 CAP)
     Route: 048
     Dates: start: 20150513, end: 20160513
  160. FLUOXETINE HCL [Concomitant]
     Active Substance: FLUOXETINE HYDROCHLORIDE
     Indication: PRODUCT USED FOR UNKNOWN INDICATION
     Dosage: 40 MG, QD (1DF=TWO CAPSULES, 1 DF= 3 CAP, 1 DF: DAYS SUPPLY: 30, QUANTITY: 90, 1 DF: 1 CAP)
     Route: 048
     Dates: start: 20141111
  161. FLUOXETINE HCL [Concomitant]
     Active Substance: FLUOXETINE HYDROCHLORIDE
     Indication: PRODUCT USED FOR UNKNOWN INDICATION
     Dosage: 1 DF, QD (1DF=TWO CAPSULES, 1 DF= 3 CAP, 1 DF: DAYS SUPPLY: 30, QUANTITY: 90, 1 DF: 1 CAP)
     Route: 048
     Dates: start: 20040513, end: 20050514
  162. BUPROPION HCL [Concomitant]
     Active Substance: BUPROPION HYDROCHLORIDE
     Indication: PRODUCT USED FOR UNKNOWN INDICATION
     Dosage: 1 TAB, QD(BUPROPION HCL 100MG 12HR SA TAB, TAKE DNP TART.PT BY MOUTH EVERY MORN FOR MOOD OR SMOKING,
     Route: 048
     Dates: start: 20100617, end: 20110618
  163. LISINOPRIL. [Concomitant]
     Active Substance: LISINOPRIL
     Indication: PRODUCT USED FOR UNKNOWN INDICATION
     Dosage: 1 DF, QD (1DF=ONE-HALF TABLET)
     Route: 048
     Dates: start: 20160223
  164. LORATADINE. [Concomitant]
     Active Substance: LORATADINE
     Indication: PRODUCT USED FOR UNKNOWN INDICATION
     Dosage: 1 DF, QD
     Route: 048
     Dates: start: 20160205
  165. MONTELUKAST [Concomitant]
     Active Substance: MONTELUKAST SODIUM
     Indication: DYSPNOEA
     Dosage: 10 MG, UNK
     Route: 065
     Dates: end: 20160126
  166. OMEPRAZOLE. [Concomitant]
     Active Substance: OMEPRAZOLE
     Indication: PRODUCT USED FOR UNKNOWN INDICATION
     Dosage: UNK(1DF=TWO CAPSULES BY MOUTH DAILY 1 HR PRIOR TO FIRST MEAL OF THE DAY FOR STOMACH,1DF=1 CAP)
     Route: 065
     Dates: end: 20160107
  167. OMEPRAZOLE. [Concomitant]
     Active Substance: OMEPRAZOLE
     Indication: PRODUCT USED FOR UNKNOWN INDICATION
     Dosage: 1 DF, QD(1DF=TWO CAPSULES BY MOUTH DAILY 1 HR PRIOR TO FIRST MEAL OF THE DAY FOR STOMACH,1DF=1 CAP
     Route: 048
     Dates: start: 20160223
  168. OMEPRAZOLE. [Concomitant]
     Active Substance: OMEPRAZOLE
     Indication: PRODUCT USED FOR UNKNOWN INDICATION
     Dosage: 1 DF, QD(1DF=TWO CAPSULES BY MOUTH DAILY 1 HR PRIOR TO FIRST MEAL OF THE DAY FOR STOMACH,1DF=1 CAP
     Route: 048
     Dates: start: 20071003, end: 20081003
  169. OMEPRAZOLE. [Concomitant]
     Active Substance: OMEPRAZOLE
     Indication: PRODUCT USED FOR UNKNOWN INDICATION
     Dosage: 1 DF, QD(1DF=TWO CAPSULES BY MOUTH DAILY 1 HR PRIOR TO FIRST MEAL OF THE DAY FOR STOMACH,1DF=1 CAP
     Route: 048
     Dates: start: 20070226, end: 20080227
  170. SIMVASTATIN. [Concomitant]
     Active Substance: SIMVASTATIN
     Indication: PRODUCT USED FOR UNKNOWN INDICATION
     Dosage: UNK (1DF=ONE-HALF TABLET)
     Route: 065
     Dates: end: 20160126
  171. BUSPIRONE HCL [Concomitant]
     Active Substance: BUSPIRONE HYDROCHLORIDE
     Indication: PRODUCT USED FOR UNKNOWN INDICATION
     Dosage: UNK(DAYS SUPPLY: 30, QUANTITY: 30, DAYS SUPPLY: 30, QUANTITY: 90)
     Route: 065
     Dates: end: 20160126
  172. BUSPIRONE HCL [Concomitant]
     Active Substance: BUSPIRONE HYDROCHLORIDE
     Indication: PRODUCT USED FOR UNKNOWN INDICATION
     Dosage: 10 MG, QD (DAYS SUPPLY: 30, QUANTITY: 30, DAYS SUPPLY: 30, QUANTITY: 90)
     Route: 048
     Dates: start: 20141111
  173. ONDANSETRON [Concomitant]
     Active Substance: ONDANSETRON
     Indication: PRODUCT USED FOR UNKNOWN INDICATION
     Dosage: 1 TAB, PRN
     Route: 048
     Dates: start: 20160223, end: 20160324
  174. DICLOFENAC NA [Concomitant]
     Active Substance: DICLOFENAC SODIUM
     Indication: INFLAMMATION
     Dosage: 1 DF, BID
     Route: 065
     Dates: start: 20150220, end: 20160221
  175. PROMETHAZINE HCL [Concomitant]
     Active Substance: PROMETHAZINE HYDROCHLORIDE
     Indication: PRODUCT USED FOR UNKNOWN INDICATION
     Dosage: 25 MG, UNK
     Route: 065
     Dates: end: 20151122
  176. LITHIUM CARBONATE. [Concomitant]
     Active Substance: LITHIUM CARBONATE
     Dosage: UNK
     Route: 065
  177. AZITHROMYCIN ANHYDROUS. [Concomitant]
     Active Substance: AZITHROMYCIN ANHYDROUS
     Indication: PRODUCT USED FOR UNKNOWN INDICATION
     Dosage: UNK
     Route: 065
  178. ARIPIPRAZOLE. [Suspect]
     Active Substance: ARIPIPRAZOLE
     Dosage: 10 MG, UNK (TAKE 4 TABLETS BY MOUTH EVERY MORNING FOR 14 DAYS, THEN TAKE 3 + 1/2 TABLETS EVERY MOR)
     Route: 048
     Dates: end: 20160126
  179. ARIPIPRAZOLE. [Suspect]
     Active Substance: ARIPIPRAZOLE
     Dosage: 1 TAB, QD (TAKE 4 TABLETS BY MOUTH EVERY MORNING FOR 14 DAYS, THEN TAKE 3 + 1/2 TABLETS EVERY MOR)
     Route: 048
     Dates: start: 20140131, end: 20150201
  180. CLOZARIL [Concomitant]
     Active Substance: CLOZAPINE
     Indication: PRODUCT USED FOR UNKNOWN INDICATION
     Dosage: UNK
     Route: 065
  181. FLUOXETINE HCL [Concomitant]
     Active Substance: FLUOXETINE HYDROCHLORIDE
     Indication: PRODUCT USED FOR UNKNOWN INDICATION
     Dosage: 1 DF, BID (1DF=TWO CAPSULES, 1 DF= 3 CAP, 1 DF: DAYS SUPPLY: 30, QUANTITY: 90, 1 DF: 1 CAP)
     Route: 048
     Dates: start: 20160126, end: 20170126
  182. FLUOXETINE HCL [Concomitant]
     Active Substance: FLUOXETINE HYDROCHLORIDE
     Indication: PRODUCT USED FOR UNKNOWN INDICATION
     Dosage: 40 MG, QD (1DF=TWO CAPSULES, 1 DF= 3 CAP, 1 DF: DAYS SUPPLY: 30, QUANTITY: 90, 1 DF: 1 CAP)
     Route: 048
     Dates: start: 20160108, end: 20160126
  183. FLUOXETINE HCL [Concomitant]
     Active Substance: FLUOXETINE HYDROCHLORIDE
     Indication: PRODUCT USED FOR UNKNOWN INDICATION
     Dosage: 1 DF, QD (1DF=TWO CAPSULES, 1 DF= 3 CAP, 1 DF: DAYS SUPPLY: 30, QUANTITY: 90, 1 DF: 1 CAP)
     Route: 048
     Dates: start: 20141007, end: 20151008
  184. FLUOXETINE HCL [Concomitant]
     Active Substance: FLUOXETINE HYDROCHLORIDE
     Indication: PRODUCT USED FOR UNKNOWN INDICATION
     Dosage: 1 DF, QD (1DF=TWO CAPSULES, 1 DF= 3 CAP, 1 DF: DAYS SUPPLY: 30, QUANTITY: 90, 1 DF: 1 CAP)
     Route: 048
     Dates: start: 20111031, end: 20121031
  185. BUPROPION HCL [Concomitant]
     Active Substance: BUPROPION HYDROCHLORIDE
     Indication: PRODUCT USED FOR UNKNOWN INDICATION
     Dosage: 1 TAB, BID(BUPROPION HCL 100MG 12HR SA TAB, TAKE DNP TART.PT BY MOUTH EVERY MORN FOR MOOD OR SMOKING
     Route: 048
     Dates: start: 20141212, end: 20151213
  186. BUPROPION HCL [Concomitant]
     Active Substance: BUPROPION HYDROCHLORIDE
     Indication: PRODUCT USED FOR UNKNOWN INDICATION
     Dosage: 200 MG, QD(BUPROPION HCL 100MG 12HR SA TAB, TAKE DNP TART.PT BY MOUTH EVERY MORN FOR MOOD OR SMOKING
     Route: 048
     Dates: start: 20141111
  187. LISINOPRIL. [Concomitant]
     Active Substance: LISINOPRIL
     Indication: PRODUCT USED FOR UNKNOWN INDICATION
     Dosage: 1 DF, QD (1DF=ONE-HALF TABLET)
     Route: 048
     Dates: start: 20160126, end: 20170126
  188. LISINOPRIL. [Concomitant]
     Active Substance: LISINOPRIL
     Indication: PRODUCT USED FOR UNKNOWN INDICATION
     Dosage: 20 MG, QD (1DF=ONE-HALF TABLET)
     Route: 048
     Dates: start: 20160126, end: 20160126
  189. LISINOPRIL. [Concomitant]
     Active Substance: LISINOPRIL
     Indication: PRODUCT USED FOR UNKNOWN INDICATION
     Dosage: UNK, QD (1DF=ONE-HALF TABLET)
     Route: 048
     Dates: start: 20160113, end: 20160126
  190. LORATADINE. [Concomitant]
     Active Substance: LORATADINE
     Indication: HYPERSENSITIVITY
     Dosage: UNK
     Route: 065
  191. OMEPRAZOLE. [Concomitant]
     Active Substance: OMEPRAZOLE
     Indication: PRODUCT USED FOR UNKNOWN INDICATION
     Dosage: 1 DF, QD(1DF=TWO CAPSULES BY MOUTH DAILY 1 HR PRIOR TO FIRST MEAL OF THE DAY FOR STOMACH,1DF=1 CAP
     Route: 048
     Dates: start: 20160615
  192. OMEPRAZOLE. [Concomitant]
     Active Substance: OMEPRAZOLE
     Indication: PRODUCT USED FOR UNKNOWN INDICATION
     Dosage: 40 MG, (1DF=TWO CAPSULES BY MOUTH DAILY 1 HR PRIOR TO FIRST MEAL OF THE DAY FOR STOMACH,1DF=1 CAP
     Route: 048
     Dates: start: 20160107, end: 20160107
  193. OMEPRAZOLE. [Concomitant]
     Active Substance: OMEPRAZOLE
     Indication: PRODUCT USED FOR UNKNOWN INDICATION
     Dosage: 1 DF, QD(1DF=TWO CAPSULES BY MOUTH DAILY 1 HR PRIOR TO FIRST MEAL OF THE DAY FOR STOMACH,1DF=1 CAP
     Route: 048
     Dates: start: 20111031, end: 20121031
  194. HYDROXYZINE PAMOATE. [Concomitant]
     Active Substance: HYDROXYZINE PAMOATE
     Indication: PRODUCT USED FOR UNKNOWN INDICATION
     Dosage: 1 DF, BID (1 DF=01 CAP)
     Route: 048
     Dates: start: 20070918, end: 20080918
  195. BUSPIRONE HCL [Concomitant]
     Active Substance: BUSPIRONE HYDROCHLORIDE
     Indication: PRODUCT USED FOR UNKNOWN INDICATION
     Dosage: 1 TAB, TID (DAYS SUPPLY: 30, QUANTITY: 30, DAYS SUPPLY: 30, QUANTITY: 90)
     Route: 048
     Dates: start: 20141007, end: 20151008
  196. BUSPIRONE HCL [Concomitant]
     Active Substance: BUSPIRONE HYDROCHLORIDE
     Indication: PRODUCT USED FOR UNKNOWN INDICATION
     Dosage: 1 TAB, TID(DAYS SUPPLY: 30, QUANTITY: 30, DAYS SUPPLY: 30, QUANTITY: 90)
     Route: 048
     Dates: start: 20111227, end: 20121227
  197. SILDENAFIL CITRATE. [Concomitant]
     Active Substance: SILDENAFIL CITRATE
     Indication: ERECTILE DYSFUNCTION
     Dosage: UNK (1DF= ONE-HALF TABLET)
     Route: 065
  198. CYCLOBENZAPRINE HCL [Concomitant]
     Active Substance: CYCLOBENZAPRINE HYDROCHLORIDE
     Indication: PRODUCT USED FOR UNKNOWN INDICATION
     Dosage: UNK
     Route: 065
     Dates: end: 20140605
  199. IBUPROFEN. [Concomitant]
     Active Substance: IBUPROFEN
     Indication: PAIN
     Dosage: UNK
     Route: 065
     Dates: end: 20140605
  200. IBUPROFEN. [Concomitant]
     Active Substance: IBUPROFEN
     Indication: INFLAMMATION
     Dosage: 1 DF, BID
     Route: 048
     Dates: start: 20140506, end: 20140605
  201. CARISOPRODOL. [Concomitant]
     Active Substance: CARISOPRODOL
     Indication: PRODUCT USED FOR UNKNOWN INDICATION
     Dosage: UNK
     Route: 065
  202. OXYCODONE [Concomitant]
     Active Substance: OXYCODONE
     Indication: PRODUCT USED FOR UNKNOWN INDICATION
     Route: 065
  203. ARIPIPRAZOLE. [Suspect]
     Active Substance: ARIPIPRAZOLE
     Indication: ANXIETY
     Dosage: 45 MG, UNK (TAKE 4 TABLETS BY MOUTH EVERY MORNING FOR 14 DAYS, THEN TAKE 3 + 1/2 TABLETS EVERY MOR)
     Route: 065
     Dates: start: 2012, end: 2016
  204. ARIPIPRAZOLE. [Suspect]
     Active Substance: ARIPIPRAZOLE
     Dosage: 15 MG, UNK(TAKE 4 TABLETS BY MOUTH EVERY MORNING FOR 14 DAYS, THEN TAKE 3 + 1/2 TABLETS EVERY MOR)
     Route: 048
     Dates: end: 20130530
  205. ARIPIPRAZOLE. [Suspect]
     Active Substance: ARIPIPRAZOLE
     Dosage: 1 DF, UNK(TAKE 4 TABLETS BY MOUTH EVERY MORNING FOR 14 DAYS, THEN TAKE 3 + 1/2 TABLETS EVERY MOR)
     Route: 048
     Dates: start: 20160223
  206. FANAPT [Concomitant]
     Active Substance: ILOPERIDONE
     Indication: PRODUCT USED FOR UNKNOWN INDICATION
     Dosage: UNK
     Route: 065
  207. HALDOL [Concomitant]
     Active Substance: HALOPERIDOL
     Indication: PRODUCT USED FOR UNKNOWN INDICATION
     Dosage: UNK
     Route: 065
  208. MIRAPEX [Concomitant]
     Active Substance: PRAMIPEXOLE DIHYDROCHLORIDE
     Indication: PRODUCT USED FOR UNKNOWN INDICATION
     Dosage: UNK
     Route: 065
  209. NORPROLAC [Concomitant]
     Active Substance: QUINAGOLIDE HYDROCHLORIDE
     Indication: PRODUCT USED FOR UNKNOWN INDICATION
     Dosage: UNK
     Route: 065
  210. FLUOXETINE HCL [Concomitant]
     Active Substance: FLUOXETINE HYDROCHLORIDE
     Indication: PRODUCT USED FOR UNKNOWN INDICATION
     Dosage: 20 MG, UNK (1DF=TWO CAPSULES, 1 DF= 3 CAP, 1 DF: DAYS SUPPLY: 30, QUANTITY: 90, 1 DF: 1 CAP)
     Route: 065
     Dates: end: 20151213
  211. FLUOXETINE HCL [Concomitant]
     Active Substance: FLUOXETINE HYDROCHLORIDE
     Indication: PRODUCT USED FOR UNKNOWN INDICATION
     Dosage: 20 MG, BID (1DF=TWO CAPSULES, 1 DF= 3 CAP, 1 DF: DAYS SUPPLY: 30, QUANTITY: 90, 1 DF: 1 CAP)
     Route: 048
     Dates: start: 20160806
  212. FLUOXETINE HCL [Concomitant]
     Active Substance: FLUOXETINE HYDROCHLORIDE
     Indication: PRODUCT USED FOR UNKNOWN INDICATION
     Dosage: 1 DF, QD (1DF=TWO CAPSULES, 1 DF= 3 CAP, 1 DF: DAYS SUPPLY: 30, QUANTITY: 90, 1 DF: 1 CAP)
     Route: 048
     Dates: start: 20130802, end: 20140803
  213. BUPROPION HCL [Concomitant]
     Active Substance: BUPROPION HYDROCHLORIDE
     Indication: DEPRESSION
     Dosage: 100 MG,Q1H12(BUPROPION HCL 100MG 12HR SA TAB, TAKE DNP TART.PT BY MOUTH EVERY MORN FOR MOOD OR SMOKI
     Route: 065
     Dates: end: 20160925
  214. BUPROPION HCL [Concomitant]
     Active Substance: BUPROPION HYDROCHLORIDE
     Indication: PRODUCT USED FOR UNKNOWN INDICATION
     Dosage: 100 MG, QD(BUPROPION HCL 100MG 12HR SA TAB, TAKE DNP TART.PT BY MOUTH EVERY MORN FOR MOOD OR SMOKING
     Route: 048
     Dates: start: 20160108, end: 20160126
  215. LORATADINE. [Concomitant]
     Active Substance: LORATADINE
     Indication: PRODUCT USED FOR UNKNOWN INDICATION
     Dosage: 1 DF, QD
     Route: 048
     Dates: start: 20160615
  216. MONTELUKAST [Concomitant]
     Active Substance: MONTELUKAST SODIUM
     Indication: PRODUCT USED FOR UNKNOWN INDICATION
     Dosage: UNK
     Route: 065
     Dates: end: 20160119
  217. MONTELUKAST [Concomitant]
     Active Substance: MONTELUKAST SODIUM
     Indication: PRODUCT USED FOR UNKNOWN INDICATION
     Dosage: 1 DF, QD
     Route: 048
     Dates: start: 20160223
  218. OMEPRAZOLE. [Concomitant]
     Active Substance: OMEPRAZOLE
     Indication: PRODUCT USED FOR UNKNOWN INDICATION
     Dosage: 1 DF, QD(1DF=TWO CAPSULES BY MOUTH DAILY 1 HR PRIOR TO FIRST MEAL OF THE DAY FOR STOMACH,1DF=1 CAP
     Route: 048
     Dates: start: 20070504, end: 20080504
  219. OMEPRAZOLE. [Concomitant]
     Active Substance: OMEPRAZOLE
     Indication: PRODUCT USED FOR UNKNOWN INDICATION
     Dosage: 1 DF, QD(1DF=TWO CAPSULES BY MOUTH DAILY 1 HR PRIOR TO FIRST MEAL OF THE DAY FOR STOMACH,1DF=1 CAP
     Route: 048
     Dates: start: 20070123, end: 20070126
  220. SIMVASTATIN. [Concomitant]
     Active Substance: SIMVASTATIN
     Indication: PRODUCT USED FOR UNKNOWN INDICATION
     Dosage: 1 DF, QD(1DF=ONE-HALF TABLET)
     Route: 048
     Dates: start: 20160126, end: 20170126
  221. HYDROXYZINE PAMOATE. [Concomitant]
     Active Substance: HYDROXYZINE PAMOATE
     Indication: PRODUCT USED FOR UNKNOWN INDICATION
     Dosage: 1 DF, PRN (1 DF=01 CAP)
     Route: 048
     Dates: start: 20150925, end: 20160925
  222. HYDROXYZINE PAMOATE. [Concomitant]
     Active Substance: HYDROXYZINE PAMOATE
     Indication: PRODUCT USED FOR UNKNOWN INDICATION
     Dosage: 25 MG, PRN (1 DF=01 CAP)
     Route: 048
     Dates: start: 20160106, end: 20160126
  223. HYDROXYZINE PAMOATE. [Concomitant]
     Active Substance: HYDROXYZINE PAMOATE
     Indication: PRODUCT USED FOR UNKNOWN INDICATION
     Dosage: 1 DF, PRN (1 DF=01 CAP)
     Route: 048
     Dates: start: 20141212, end: 20151213
  224. BUSPIRONE HCL [Concomitant]
     Active Substance: BUSPIRONE HYDROCHLORIDE
     Indication: PRODUCT USED FOR UNKNOWN INDICATION
     Dosage: 1 TAB, TID (DAYS SUPPLY: 30, QUANTITY: 30, DAYS SUPPLY: 30, QUANTITY: 90)
     Route: 048
     Dates: start: 20160414
  225. BUSPIRONE HCL [Concomitant]
     Active Substance: BUSPIRONE HYDROCHLORIDE
     Indication: PRODUCT USED FOR UNKNOWN INDICATION
     Dosage: 1 TAB, TID(DAYS SUPPLY: 30, QUANTITY: 30, DAYS SUPPLY: 30, QUANTITY: 90)
     Route: 048
     Dates: start: 20150925, end: 20160925
  226. BUSPIRONE HCL [Concomitant]
     Active Substance: BUSPIRONE HYDROCHLORIDE
     Indication: PRODUCT USED FOR UNKNOWN INDICATION
     Dosage: 1 TAB, TID (DAYS SUPPLY: 30, QUANTITY: 30, DAYS SUPPLY: 30, QUANTITY: 90)
     Route: 048
     Dates: start: 20130129, end: 20140130
  227. ONDANSETRON [Concomitant]
     Active Substance: ONDANSETRON
     Indication: PRODUCT USED FOR UNKNOWN INDICATION
     Dosage: UNK
     Route: 065
     Dates: end: 20160126
  228. ACETAMINOPHEN. [Concomitant]
     Active Substance: ACETAMINOPHEN
     Indication: PYREXIA
     Dosage: UNK
     Route: 065
     Dates: end: 20160324
  229. NAPROXEN. [Concomitant]
     Active Substance: NAPROXEN
     Indication: PAIN
     Dosage: UNK
     Route: 065
     Dates: end: 20160218
  230. RISPERIDONE. [Concomitant]
     Active Substance: RISPERIDONE
     Indication: MENTAL DISORDER
     Dosage: 2 MG, UNK
     Route: 065
     Dates: end: 20121227
  231. RISPERIDONE. [Concomitant]
     Active Substance: RISPERIDONE
     Indication: PRODUCT USED FOR UNKNOWN INDICATION
     Dosage: 1 DF, QD
     Route: 048
     Dates: start: 20111227, end: 20121227
  232. LITHIUM CARBONATE. [Concomitant]
     Active Substance: LITHIUM CARBONATE
     Indication: AFFECTIVE DISORDER
     Dosage: 300 MG, UNK (1 DF: DAYS SUPPLY: 30, QUANTITY: 30, DAYS SUPPLY: 30, QUANTITY: 60)
     Route: 065
     Dates: end: 20121031
  233. LITHIUM CARBONATE. [Concomitant]
     Active Substance: LITHIUM CARBONATE
     Indication: PRODUCT USED FOR UNKNOWN INDICATION
     Dosage: 1 TAB, QD (1 DF: DAYS SUPPLY: 30, QUANTITY: 30, DAYS SUPPLY: 30, QUANTITY: 60)
     Route: 048
     Dates: start: 20110228, end: 20120229
  234. LITHIUM CARBONATE. [Concomitant]
     Active Substance: LITHIUM CARBONATE
     Indication: PRODUCT USED FOR UNKNOWN INDICATION
     Dosage: 1 TAB, QD (1 DF: DAYS SUPPLY: 30, QUANTITY: 30, DAYS SUPPLY: 30, QUANTITY: 60
     Route: 048
     Dates: start: 20070126, end: 20080127
  235. CLINDAMYCIN. [Concomitant]
     Active Substance: CLINDAMYCIN
     Indication: PRODUCT USED FOR UNKNOWN INDICATION
     Route: 065
  236. ARIPIPRAZOLE. [Suspect]
     Active Substance: ARIPIPRAZOLE
     Indication: AFFECTIVE DISORDER
     Dosage: 10 MG, UNK (TAKE 4 TABLETS BY MOUTH EVERY MORNING FOR 14 DAYS, THEN TAKE 3 + 1/2 TABLETS EVERY MOR)
     Route: 048
     Dates: start: 2012, end: 2016
  237. ARIPIPRAZOLE. [Suspect]
     Active Substance: ARIPIPRAZOLE
     Indication: BIPOLAR DISORDER
     Dosage: 15 MG, UNK(TAKE 4 TABLETS BY MOUTH EVERY MORNING FOR 14 DAYS, THEN TAKE 3 + 1/2 TABLETS EVERY MOR)
     Route: 065
     Dates: start: 2012, end: 2016
  238. ARIPIPRAZOLE. [Suspect]
     Active Substance: ARIPIPRAZOLE
     Dosage: 30 MG, UNK(TAKE 4 TABLETS BY MOUTH EVERY MORNING FOR 14 DAYS, THEN TAKE 3 + 1/2 TABLETS EVERY MOR)
     Route: 065
     Dates: end: 20160925
  239. ARIPIPRAZOLE. [Suspect]
     Active Substance: ARIPIPRAZOLE
     Dosage: 30 MG, UNK(TAKE 4 TABLETS BY MOUTH EVERY MORNING FOR 14 DAYS, THEN TAKE 3 + 1/2 TABLETS EVERY MOR)
     Route: 065
     Dates: end: 20150201
  240. ARIPIPRAZOLE. [Suspect]
     Active Substance: ARIPIPRAZOLE
     Dosage: 30 MG, UNK(TAKE 4 TABLETS BY MOUTH EVERY MORNING FOR 14 DAYS, THEN TAKE 3 + 1/2 TABLETS EVERY MOR)
     Route: 065
     Dates: end: 20140130
  241. FLUOXETINE HCL [Concomitant]
     Active Substance: FLUOXETINE HYDROCHLORIDE
     Indication: PRODUCT USED FOR UNKNOWN INDICATION
     Dosage: UNK (1DF=TWO CAPSULES, 1 DF= 3 CAP, 1 DF: DAYS SUPPLY: 30, QUANTITY: 90, 1 DF: 1 CAP)
     Route: 048
     Dates: end: 20160126
  242. FLUOXETINE HCL [Concomitant]
     Active Substance: FLUOXETINE HYDROCHLORIDE
     Indication: PRODUCT USED FOR UNKNOWN INDICATION
     Dosage: UNK (1DF=TWO CAPSULES, 1 DF= 3 CAP, 1 DF: DAYS SUPPLY: 30, QUANTITY: 90, 1 DF: 1 CAP)
     Route: 048
     Dates: end: 20160107
  243. FLUOXETINE HCL [Concomitant]
     Active Substance: FLUOXETINE HYDROCHLORIDE
     Indication: PRODUCT USED FOR UNKNOWN INDICATION
     Dosage: 1 DF, QD (1DF=TWO CAPSULES, 1 DF= 3 CAP, 1 DF: DAYS SUPPLY: 30, QUANTITY: 90, 1 DF: 1 CAP)
     Route: 048
     Dates: start: 20140131, end: 20150201
  244. FLUOXETINE HCL [Concomitant]
     Active Substance: FLUOXETINE HYDROCHLORIDE
     Indication: PRODUCT USED FOR UNKNOWN INDICATION
     Dosage: 1 DF, QD (1DF=TWO CAPSULES, 1 DF= 3 CAP, 1 DF: DAYS SUPPLY: 30, QUANTITY: 90, 1 DF: 1 CAP)
     Route: 048
     Dates: start: 20111227, end: 20121227
  245. FLUOXETINE HCL [Concomitant]
     Active Substance: FLUOXETINE HYDROCHLORIDE
     Indication: PRODUCT USED FOR UNKNOWN INDICATION
     Dosage: 1 DF, QD (1DF=TWO CAPSULES, 1 DF= 3 CAP, 1 DF: DAYS SUPPLY: 30, QUANTITY: 90, 1 DF: 1 CAP)
     Route: 048
     Dates: start: 20110228, end: 20120229
  246. BUPROPION HCL [Concomitant]
     Active Substance: BUPROPION HYDROCHLORIDE
     Indication: AFFECTIVE DISORDER
     Dosage: UNK (BUPROPION HCL 100MG 12HR SA TAB, TAKE DNP TART.PT BY MOUTH EVERY MORN FOR MOOD OR SMOKING, CESS
     Route: 065
     Dates: end: 20160126
  247. BUPROPION HCL [Concomitant]
     Active Substance: BUPROPION HYDROCHLORIDE
     Indication: PRODUCT USED FOR UNKNOWN INDICATION
     Dosage: 100 MG, Q12H(BUPROPION HCL 100MG 12HR SA TAB, TAKE DNP TART.PT BY MOUTH EVERY MORN FOR MOOD OR SMOKI
     Route: 065
     Dates: end: 20151213
  248. BUPROPION HCL [Concomitant]
     Active Substance: BUPROPION HYDROCHLORIDE
     Indication: PRODUCT USED FOR UNKNOWN INDICATION
     Dosage: 1 TAB, BID(BUPROPION HCL 100MG 12HR SA TAB, TAKE DNP TART.PT BY MOUTH EVERY MORN FOR MOOD OR SMOKING
     Route: 048
     Dates: start: 20160126, end: 20170126
  249. BUPROPION HCL [Concomitant]
     Active Substance: BUPROPION HYDROCHLORIDE
     Indication: PRODUCT USED FOR UNKNOWN INDICATION
     Dosage: 100 MG, QD(BUPROPION HCL 100MG 12HR SA TAB, TAKE DNP TART.PT BY MOUTH EVERY MORN FOR MOOD OR SMOKING
     Route: 048
     Dates: start: 20160107, end: 20170126
  250. BUPROPION HCL [Concomitant]
     Active Substance: BUPROPION HYDROCHLORIDE
     Indication: PRODUCT USED FOR UNKNOWN INDICATION
     Dosage: 1 TAB, QD(BUPROPION HCL 100MG 12HR SA TAB, TAKE DNP TART.PT BY MOUTH EVERY MORN FOR MOOD OR SMOKING,
     Route: 048
     Dates: start: 20090218, end: 20100219
  251. LISINOPRIL. [Concomitant]
     Active Substance: LISINOPRIL
     Indication: PRODUCT USED FOR UNKNOWN INDICATION
     Dosage: 1 DF, QD (1DF=ONE-HALF TABLET)
     Route: 048
     Dates: start: 20160420
  252. LISINOPRIL. [Concomitant]
     Active Substance: LISINOPRIL
     Indication: PRODUCT USED FOR UNKNOWN INDICATION
     Dosage: 10 MG, QD (1DF=ONE-HALF TABLET)
     Route: 048
     Dates: start: 20160113
  253. LORATADINE. [Concomitant]
     Active Substance: LORATADINE
     Indication: PRODUCT USED FOR UNKNOWN INDICATION
     Dosage: 1 DF, QD
     Route: 048
     Dates: start: 20160223
  254. MONTELUKAST [Concomitant]
     Active Substance: MONTELUKAST SODIUM
     Indication: PRODUCT USED FOR UNKNOWN INDICATION
     Dosage: 1 DF, QD
     Route: 048
     Dates: start: 20160615
  255. MONTELUKAST [Concomitant]
     Active Substance: MONTELUKAST SODIUM
     Indication: PRODUCT USED FOR UNKNOWN INDICATION
     Dosage: 1 DF, QD
     Route: 048
     Dates: start: 20160126, end: 20170126
  256. OMEPRAZOLE. [Concomitant]
     Active Substance: OMEPRAZOLE
     Indication: ADVERSE EVENT
     Dosage: 20 MG,UNK(1DF=TWO CAPSULES BY MOUTH DAILY 1 HR PRIOR TO FIRST MEAL OF THE DAY FOR STOMACH,1DF=1 CAP)
     Route: 065
     Dates: end: 20160526
  257. OMEPRAZOLE. [Concomitant]
     Active Substance: OMEPRAZOLE
     Indication: PRODUCT USED FOR UNKNOWN INDICATION
     Dosage: UNK(1DF=TWO CAPSULES BY MOUTH DAILY 1 HR PRIOR TO FIRST MEAL OF THE DAY FOR STOMACH,1DF=1 CAP)
     Route: 065
     Dates: end: 20160126
  258. OMEPRAZOLE. [Concomitant]
     Active Substance: OMEPRAZOLE
     Indication: PRODUCT USED FOR UNKNOWN INDICATION
     Dosage: 40 MG, QD(1DF=TWO CAPSULES BY MOUTH DAILY 1 HR PRIOR TO FIRST MEAL OF THE DAY FOR STOMACH,1DF=1 CAP
     Route: 048
     Dates: start: 20160107, end: 20170126
  259. OMEPRAZOLE. [Concomitant]
     Active Substance: OMEPRAZOLE
     Indication: PRODUCT USED FOR UNKNOWN INDICATION
     Dosage: 1 DF, QD(1DF=TWO CAPSULES BY MOUTH DAILY 1 HR PRIOR TO FIRST MEAL OF THE DAY FOR STOMACH,1DF=1 CAP
     Route: 048
     Dates: start: 20140304, end: 20150305
  260. SIMVASTATIN. [Concomitant]
     Active Substance: SIMVASTATIN
     Indication: PRODUCT USED FOR UNKNOWN INDICATION
     Dosage: 1 DF, QD (1DF=ONE-HALF TABLET)
     Route: 048
     Dates: start: 20160420
  261. SIMVASTATIN. [Concomitant]
     Active Substance: SIMVASTATIN
     Indication: PRODUCT USED FOR UNKNOWN INDICATION
     Dosage: 1 DF, QD (1DF=ONE-HALF TABLET)
     Route: 048
     Dates: start: 20151023, end: 20161023
  262. SIMVASTATIN. [Concomitant]
     Active Substance: SIMVASTATIN
     Indication: PRODUCT USED FOR UNKNOWN INDICATION
     Dosage: 40 MG, QD (1DF=ONE-HALF TABLET)
     Route: 048
     Dates: start: 20160106, end: 20160126
  263. HYDROXYZINE PAMOATE. [Concomitant]
     Active Substance: HYDROXYZINE PAMOATE
     Indication: PRODUCT USED FOR UNKNOWN INDICATION
     Dosage: 1 DF, PRN (1 DF=01 CAP)
     Route: 048
     Dates: start: 20160414
  264. HYDROXYZINE PAMOATE. [Concomitant]
     Active Substance: HYDROXYZINE PAMOATE
     Indication: PRODUCT USED FOR UNKNOWN INDICATION
     Dosage: 1 DF, PRN (1 DF=01 CAP)
     Route: 048
     Dates: start: 20140610, end: 20150611
  265. BUSPIRONE HCL [Concomitant]
     Active Substance: BUSPIRONE HYDROCHLORIDE
     Indication: PRODUCT USED FOR UNKNOWN INDICATION
     Dosage: 1 TAB, TID (DAYS SUPPLY: 30, QUANTITY: 30, DAYS SUPPLY: 30, QUANTITY: 90)
     Route: 048
     Dates: start: 20100113, end: 20110114
  266. FLUTICASONE PROPIONATE. [Concomitant]
     Active Substance: FLUTICASONE PROPIONATE
     Indication: PRODUCT USED FOR UNKNOWN INDICATION
     Dosage: UNK(1DF=INSTILL 2 SPRAY 50 MCG/SPEAY IN EACH NOSTRIL AT BEDTIME FOR BREATHING)
     Route: 045
  267. FLUTICASONE PROPIONATE. [Concomitant]
     Active Substance: FLUTICASONE PROPIONATE
     Indication: PRODUCT USED FOR UNKNOWN INDICATION
     Dosage: 1 DF, QD (1DF=INSTILL 2 SPRAY 50 MCG/SPEAY IN EACH NOSTRIL AT BEDTIME FOR BREATHING)
     Route: 045
     Dates: start: 20160223
  268. FLUTICASONE PROPIONATE. [Concomitant]
     Active Substance: FLUTICASONE PROPIONATE
     Indication: PRODUCT USED FOR UNKNOWN INDICATION
     Dosage: 1 DF, QD (1DF=INSTILL 2 SPRAY 50 MCG/SPEAY IN EACH NOSTRIL AT BEDTIME FOR BREATHING)
     Route: 045
     Dates: start: 20160205
  269. DICLOFENAC NA [Concomitant]
     Active Substance: DICLOFENAC SODIUM
     Indication: PAIN
     Dosage: UNK
     Route: 065
     Dates: end: 20160221
  270. LOVASTATIN. [Concomitant]
     Active Substance: LOVASTATIN
     Indication: BLOOD CHOLESTEROL
     Dosage: UNK
     Route: 065
     Dates: end: 20160221
  271. NAPROXEN. [Concomitant]
     Active Substance: NAPROXEN
     Indication: INFLAMMATION
     Dosage: 1 DF, BID
     Route: 048
     Dates: start: 20150217, end: 20160218
  272. LITHIUM CARBONATE. [Concomitant]
     Active Substance: LITHIUM CARBONATE
     Indication: PRODUCT USED FOR UNKNOWN INDICATION
     Dosage: 1 TAB, QD (1 DF: DAYS SUPPLY: 30, QUANTITY: 30, DAYS SUPPLY: 30, QUANTITY: 60)
     Route: 048
     Dates: start: 20111031, end: 20121031

REACTIONS (9)
  - Arthralgia [Unknown]
  - Hospitalisation [Unknown]
  - Eating disorder [Recovered/Resolved]
  - Product use in unapproved indication [Unknown]
  - Nephrolithiasis [Unknown]
  - Gambling disorder [Recovered/Resolved]
  - Compulsive shopping [Recovered/Resolved]
  - Rotator cuff syndrome [Unknown]
  - Weight increased [Recovered/Resolved]

NARRATIVE: CASE EVENT DATE: 2012
